FAERS Safety Report 9038109 (Version 2)
Quarter: 2013Q2

REPORT INFORMATION
  Report Type: Spontaneous
  Country: JP (occurrence: JP)
  Receive Date: 20130129
  Receipt Date: 20130506
  Transmission Date: 20140414
  Serious: Yes (Other)
  Sender: FDA-Public Use
  Company Number: JP-GILEAD-2013-0068658

PATIENT
  Age: 58 Year
  Sex: Female

DRUGS (5)
  1. HEPSERA [Suspect]
     Indication: PRODUCT USED FOR UNKNOWN INDICATION
     Dosage: 10MG PER DAY
     Route: 048
  2. HEPSERA [Suspect]
     Dosage: UNK
     Route: 048
     Dates: start: 20130122, end: 20130424
  3. HEPSERA [Suspect]
     Dosage: 10MG PER DAY
     Route: 048
  4. ZEFIX 100 [Suspect]
     Indication: PRODUCT USED FOR UNKNOWN INDICATION
     Dosage: 100MG PER DAY
     Route: 048
  5. ZEFIX 100 [Suspect]
     Dosage: 100MG PER DAY
     Route: 048

REACTIONS (3)
  - Osteoporosis [Unknown]
  - Osteomalacia [Recovering/Resolving]
  - Ankle fracture [Recovered/Resolved]
